FAERS Safety Report 15760366 (Version 1)
Quarter: 2018Q4

REPORT INFORMATION
  Report Type: Spontaneous
  Country: US (occurrence: US)
  Receive Date: 20181224
  Receipt Date: 20181224
  Transmission Date: 20190205
  Serious: Yes (Death, Life-Threatening, Disabling)
  Sender: FDA-Public Use
  Company Number: None

PATIENT
  Age: 20 Year
  Sex: Female
  Weight: 63 kg

DRUGS (2)
  1. BUSPIRONE [Suspect]
     Active Substance: BUSPIRONE HYDROCHLORIDE
     Indication: MANIA
     Dosage: ?          QUANTITY:60 TABLET(S);OTHER FREQUENCY:ONCE OR TWICE A DA;?
     Route: 048
     Dates: start: 20181002, end: 20181030
  2. INVEGA SUSTENNA [Suspect]
     Active Substance: PALIPERIDONE PALMITATE
     Indication: SCHIZOAFFECTIVE DISORDER BIPOLAR TYPE
     Dosage: ?          QUANTITY:1 INJECTION(S);OTHER FREQUENCY:MONTHLY;?
     Route: 030
     Dates: start: 20180307, end: 20181022

REACTIONS (5)
  - Anxiety [None]
  - Gun shot wound [None]
  - Palpitations [None]
  - Completed suicide [None]
  - Depressed mood [None]

NARRATIVE: CASE EVENT DATE: 20181030
